FAERS Safety Report 24288927 (Version 1)
Quarter: 2024Q3

REPORT INFORMATION
  Report Type: Spontaneous
  Country: GB (occurrence: GB)
  Receive Date: 20240906
  Receipt Date: 20240906
  Transmission Date: 20241017
  Serious: Yes (Other)
  Sender: CSL BEHRING
  Company Number: GB-BEH-2024177170

PATIENT
  Age: 31 Year
  Sex: Female

DRUGS (1)
  1. BERINERT [Suspect]
     Active Substance: HUMAN C1-ESTERASE INHIBITOR
     Indication: Hereditary angioedema
     Dosage: 200 IU AS DIRECTED BY PRESCRIBER
     Route: 042

REACTIONS (4)
  - Hereditary angioedema [Unknown]
  - Product dispensing error [Unknown]
  - Product dispensing error [Unknown]
  - Product communication issue [Unknown]
